FAERS Safety Report 13362620 (Version 1)
Quarter: 2017Q1

REPORT INFORMATION
  Report Type: Spontaneous
  Country: US (occurrence: US)
  Receive Date: 20170322
  Receipt Date: 20170322
  Transmission Date: 20170429
  Serious: Yes (Hospitalization)
  Sender: FDA-Public Use
  Company Number: None

PATIENT
  Age: 75 Year
  Sex: Male

DRUGS (16)
  1. CEFAZOLIN [Concomitant]
     Active Substance: CEFAZOLIN
  2. AVODART [Concomitant]
     Active Substance: DUTASTERIDE
  3. METOPROLOL TARTRATE. [Concomitant]
     Active Substance: METOPROLOL TARTRATE
  4. VITAMIN D3 [Concomitant]
     Active Substance: CHOLECALCIFEROL
  5. METOCLOPRAM [Concomitant]
     Active Substance: METOCLOPRAMIDE
  6. MULTI VITAMIN [Concomitant]
     Active Substance: VITAMINS
  7. DULOXETINE. [Concomitant]
     Active Substance: DULOXETINE
  8. SUTENT [Suspect]
     Active Substance: SUNITINIB MALATE
     Indication: RENAL CANCER
     Route: 048
     Dates: start: 20160903
  9. PRAVASTATIN. [Concomitant]
     Active Substance: PRAVASTATIN
  10. LEVAQUIN [Concomitant]
     Active Substance: LEVOFLOXACIN
  11. RANITIDE [Concomitant]
  12. GLIPIZIDE. [Concomitant]
     Active Substance: GLIPIZIDE
  13. WARFARN [Concomitant]
  14. GABAPENTIN. [Concomitant]
     Active Substance: GABAPENTIN
  15. CALCIUM [Concomitant]
     Active Substance: CALCIUM
  16. FUROS [Concomitant]

REACTIONS (1)
  - Anal haemorrhage [None]

NARRATIVE: CASE EVENT DATE: 201703
